FAERS Safety Report 6896875-7 (Version None)
Quarter: 2010Q3

REPORT INFORMATION
  Report Type: 
  Country: None (occurrence: None)
  Receive Date: 20100802
  Receipt Date: 20070228
  Transmission Date: 20110219
  Serious: No
  Sender: FDA-Public Use
  Company Number: US-PFIZER INC-2007016466

PATIENT
  Sex: Male
  Weight: 87.1 kg

DRUGS (4)
  1. LYRICA [Suspect]
     Indication: NEUROPATHY PERIPHERAL
     Dates: start: 20050101
  2. MONTELUKAST SODIUM [Concomitant]
  3. ACETYLSALICYLIC ACID SRT [Concomitant]
  4. VITAMINS [Concomitant]

REACTIONS (5)
  - ABDOMINAL DISTENSION [None]
  - BURNING SENSATION [None]
  - EXERCISE LACK OF [None]
  - OEDEMA PERIPHERAL [None]
  - ORGASM ABNORMAL [None]
